FAERS Safety Report 4786450-2 (Version None)
Quarter: 2005Q3

REPORT INFORMATION
  Report Type: 
  Country: None (occurrence: None)
  Receive Date: 20050927
  Receipt Date: 20050721
  Transmission Date: 20060218
  Serious: No
  Sender: FDA-Public Use
  Company Number: USA0507103538

PATIENT
  Age: 19 Year
  Sex: Female

DRUGS (1)
  1. STRATTERA [Suspect]
     Indication: ATTENTION DEFICIT/HYPERACTIVITY DISORDER
     Dosage: 60 MG DAY
     Dates: start: 20050101

REACTIONS (4)
  - CRYING [None]
  - EMOTIONAL DISTRESS [None]
  - NIGHTMARE [None]
  - SLEEP TERROR [None]
